FAERS Safety Report 23794739 (Version 1)
Quarter: 2024Q2

REPORT INFORMATION
  Report Type: Spontaneous
  Country: US (occurrence: US)
  Receive Date: 20240429
  Receipt Date: 20240429
  Transmission Date: 20240716
  Serious: No
  Sender: FDA-Public Use
  Company Number: US-PFIZER INC-202400094421

PATIENT
  Age: 72 Year
  Sex: Female
  Weight: 72.57 kg

DRUGS (1)
  1. IBRANCE [Suspect]
     Active Substance: PALBOCICLIB
     Indication: Breast cancer
     Dosage: 3 WEEKS, EVERY 3 WEEKS, FOR 3 WEEKS ON AND 1 WEEK OFF (100 MG)
     Route: 048

REACTIONS (2)
  - Lip pain [Not Recovered/Not Resolved]
  - Chapped lips [Not Recovered/Not Resolved]
